FAERS Safety Report 6977225-4 (Version None)
Quarter: 2010Q3

REPORT INFORMATION
  Report Type: 
  Country: None (occurrence: None)
  Receive Date: 20100910
  Receipt Date: 20100828
  Transmission Date: 20110219
  Serious: No
  Sender: FDA-Public Use
  Company Number: HK-WYE-H16990310

PATIENT
  Age: 39 Year
  Sex: Female

DRUGS (2)
  1. TORISEL [Suspect]
     Indication: METASTATIC RENAL CELL CARCINOMA
     Route: 042
     Dates: start: 20090401
  2. BEVACIZUMAB [Suspect]
     Indication: METASTATIC RENAL CELL CARCINOMA
     Route: 042

REACTIONS (13)
  - ALANINE AMINOTRANSFERASE INCREASED [None]
  - ASPARTATE AMINOTRANSFERASE ABNORMAL [None]
  - BLOOD ALKALINE PHOSPHATASE ABNORMAL [None]
  - CONDITION AGGRAVATED [None]
  - COUGH [None]
  - DRY SKIN [None]
  - DYSPHONIA [None]
  - HEADACHE [None]
  - MALAISE [None]
  - MUCOSAL INFLAMMATION [None]
  - PROTEINURIA [None]
  - RASH [None]
  - STOMATITIS [None]
